FAERS Safety Report 4700378-5 (Version None)
Quarter: 2005Q2

REPORT INFORMATION
  Report Type: 
  Country: None (occurrence: None)
  Receive Date: 20050627
  Receipt Date: 20050614
  Transmission Date: 20051028
  Serious: Yes (Other)
  Sender: FDA-Public Use
  Company Number: SE-JNJFOC-20050603446

PATIENT
  Age: 38 Year
  Sex: Female

DRUGS (3)
  1. REMICADE [Suspect]
     Dosage: REACTION OCCURRED A COUPLE OF ML INTO THIS THIRD INFUSION
     Route: 042
  2. REMICADE [Suspect]
     Indication: CROHN'S DISEASE
     Route: 042
  3. FLAGYL [Concomitant]
     Route: 065

REACTIONS (5)
  - CHILLS [None]
  - INFUSION RELATED REACTION [None]
  - PALPITATIONS [None]
  - PHARYNGEAL OEDEMA [None]
  - SWELLING FACE [None]
